FAERS Safety Report 24397068 (Version 1)
Quarter: 2024Q4

REPORT INFORMATION
  Report Type: Spontaneous
  Country: US (occurrence: None)
  Receive Date: 20241003
  Receipt Date: 20241003
  Transmission Date: 20250114
  Serious: Yes (Life-Threatening, Hospitalization, Disabling, Other)
  Sender: Public
  Company Number: None

PATIENT
  Age: 37 Year
  Sex: Female
  Weight: 94.5 kg

DRUGS (6)
  1. ZEPBOUND [Suspect]
     Active Substance: TIRZEPATIDE
     Indication: Weight decreased
     Dosage: OTHER QUANTITY : 1 INJECTION(S);?OTHER FREQUENCY : WEEKLY;?
     Route: 058
     Dates: start: 20240701, end: 20240916
  2. PROPRANOLOL [Concomitant]
     Active Substance: PROPRANOLOL HYDROCHLORIDE
  3. ANTIHISTAMINES NOS [Concomitant]
     Active Substance: ANTIHISTAMINES NOS
  4. CALCIUM [Concomitant]
     Active Substance: CALCIUM
  5. VITAMIN A [Concomitant]
     Active Substance: VITAMIN A
  6. IRON [Concomitant]
     Active Substance: IRON

REACTIONS (6)
  - Heart rate increased [None]
  - Abdominal pain upper [None]
  - Nausea [None]
  - Impaired driving ability [None]
  - Gastroenteritis viral [None]
  - Dizziness [None]

NARRATIVE: CASE EVENT DATE: 20240824
